FAERS Safety Report 8980199 (Version 5)
Quarter: 2013Q1

REPORT INFORMATION
  Report Type: Spontaneous
  Country: CA (occurrence: CA)
  Receive Date: 20121221
  Receipt Date: 20130125
  Transmission Date: 20140127
  Serious: Yes (Hospitalization, Other)
  Sender: FDA-Public Use
  Company Number: PHHY2012CA077645

PATIENT
  Sex: Male

DRUGS (1)
  1. ZOMETA [Suspect]
     Indication: PLASMA CELL MYELOMA
     Dosage: 4 MG, EVERY 4 WEEKS
     Route: 042
     Dates: start: 20120830, end: 20121210

REACTIONS (5)
  - Pain [Unknown]
  - Malaise [Recovering/Resolving]
  - Blood count abnormal [Unknown]
  - Immune system disorder [Unknown]
  - Hyperhidrosis [Unknown]
